FAERS Safety Report 15392362 (Version 1)
Quarter: 2018Q3

REPORT INFORMATION
  Report Type: Report from Study
  Country: IT (occurrence: IT)
  Receive Date: 20180917
  Receipt Date: 20180917
  Transmission Date: 20181010
  Serious: Yes (Hospitalization)
  Sender: FDA-Public Use
  Company Number: IT-PFIZER INC-2018367445

PATIENT
  Age: 46 Year
  Sex: Male

DRUGS (2)
  1. LORAZEPAM. [Suspect]
     Active Substance: LORAZEPAM
     Dosage: 40 MG (2 MG/ML 2 PACKAGES), TOTAL
     Route: 048
     Dates: start: 20180705, end: 20180705
  2. LEVOFLOXACIN. [Suspect]
     Active Substance: LEVOFLOXACIN
     Dosage: 2500 MG, TOTAL
     Route: 048
     Dates: start: 20180705, end: 20180705

REACTIONS (3)
  - Drug abuse [Recovering/Resolving]
  - Overdose [Recovered/Resolved]
  - Palpitations [Recovering/Resolving]

NARRATIVE: CASE EVENT DATE: 20180705
